FAERS Safety Report 22259685 (Version 2)
Quarter: 2023Q2

REPORT INFORMATION
  Report Type: Spontaneous
  Country: DE (occurrence: DE)
  Receive Date: 20230427
  Receipt Date: 20230509
  Transmission Date: 20230721
  Serious: Yes (Other)
  Sender: FDA-Public Use
  Company Number: ALC2023DE002114

PATIENT

DRUGS (2)
  1. SIMBRINZA [Suspect]
     Active Substance: BRIMONIDINE TARTRATE\BRINZOLAMIDE
     Indication: Product used for unknown indication
     Dosage: UNK (STRENGTH: 10 MG/ML +2 MG/ML)
     Route: 065
  2. TRAVOPROST ZENTIVA [Concomitant]
     Indication: Product used for unknown indication
     Dosage: UNK
     Route: 047

REACTIONS (4)
  - Eye haemorrhage [Unknown]
  - Injury associated with device [Unknown]
  - Product container issue [Unknown]
  - Eye pain [Unknown]
